FAERS Safety Report 6620224-2 (Version None)
Quarter: 2010Q1

REPORT INFORMATION
  Report Type: 
  Country: None (occurrence: None)
  Receive Date: 20100308
  Receipt Date: 20100308
  Transmission Date: 20100710
  Serious: No
  Sender: FDA-Public Use
  Company Number: None

PATIENT
  Age: 68 Year
  Sex: Female
  Weight: 79.3795 kg

DRUGS (1)
  1. DEPAKOTE [Suspect]
     Indication: CONVULSION
     Dosage: 250MG TID P.O.
     Route: 048
     Dates: end: 20091113

REACTIONS (4)
  - DIZZINESS [None]
  - EPISTAXIS [None]
  - FALL [None]
  - HEAD INJURY [None]
